FAERS Safety Report 9123493 (Version 6)
Quarter: 2014Q2

REPORT INFORMATION
  Report Type: Report from Study
  Country: BR (occurrence: BR)
  Receive Date: 20130115
  Receipt Date: 20140624
  Transmission Date: 20141212
  Serious: Yes (Other)
  Sender: FDA-Public Use
  Company Number: BR-SANOFI-AVENTIS-2013SA001723

PATIENT
  Age: 68 Year
  Sex: Female
  Weight: 78 kg

DRUGS (13)
  1. APIDRA [Suspect]
     Indication: TYPE 2 DIABETES MELLITUS
     Dosage: ACCORDING TO CARBOHYDRATES COUNTING
     Route: 058
     Dates: start: 20140424, end: 20140427
  2. APIDRA [Suspect]
     Indication: TYPE 2 DIABETES MELLITUS
     Dosage: ACCORDING TO CARBOHYDRATES COUNTING
     Route: 058
     Dates: start: 20140424, end: 20140427
  3. APIDRA [Suspect]
     Indication: TYPE 2 DIABETES MELLITUS
     Dosage: ACCORDING TO CARBOHYDRATES COUNTING
     Route: 058
     Dates: start: 2009
  4. APIDRA [Suspect]
     Indication: TYPE 2 DIABETES MELLITUS
     Dosage: ACCORDING TO CARBOHYDRATES COUNTING
     Route: 058
     Dates: start: 20140424, end: 20140427
  5. APIDRA [Suspect]
     Indication: TYPE 2 DIABETES MELLITUS
     Route: 065
  6. LANTUS [Concomitant]
     Indication: TYPE 2 DIABETES MELLITUS
     Route: 058
     Dates: start: 2009
  7. OMEPRAZOLE [Concomitant]
     Indication: ABDOMINAL DISCOMFORT
     Route: 048
     Dates: start: 2010
  8. AZATHIOPRINE [Concomitant]
     Indication: ILL-DEFINED DISORDER
     Route: 048
     Dates: start: 2010
  9. LOSARTAN POTASSIUM [Concomitant]
     Indication: HYPERTENSION
     Route: 048
     Dates: start: 2011
  10. ATORVASTATIN [Concomitant]
     Indication: HYPERTENSION
     Route: 048
     Dates: start: 2010
  11. TACROLIMUS [Concomitant]
     Indication: ILL-DEFINED DISORDER
     Route: 048
     Dates: start: 2010
  12. CLIKSTAR [Concomitant]
  13. INSULIN [Concomitant]

REACTIONS (12)
  - Renal transplant [Unknown]
  - Limb injury [Recovering/Resolving]
  - Immobile [Recovering/Resolving]
  - Gait disturbance [Recovering/Resolving]
  - Hyperglycaemia [Recovered/Resolved]
  - Vision blurred [Recovered/Resolved]
  - Peripheral coldness [Recovered/Resolved]
  - Tremor [Recovered/Resolved]
  - Drug ineffective [Unknown]
  - Blood glucose increased [Recovered/Resolved]
  - Visual impairment [Recovered/Resolved]
  - Malaise [Recovered/Resolved]
